FAERS Safety Report 16781663 (Version 1)
Quarter: 2019Q3

REPORT INFORMATION
  Report Type: Report from Study
  Country: US (occurrence: US)
  Receive Date: 20190906
  Receipt Date: 20190906
  Transmission Date: 20191005
  Serious: Yes (Other)
  Sender: FDA-Public Use
  Company Number: US-ROCHE-2402371

PATIENT

DRUGS (1)
  1. BEVACIZUMAB. [Suspect]
     Active Substance: BEVACIZUMAB
     Indication: GLIOBLASTOMA
     Route: 065

REACTIONS (5)
  - Seizure [Unknown]
  - Ataxia [Unknown]
  - Cognitive disorder [Unknown]
  - Optic nerve disorder [Unknown]
  - Neuropathy peripheral [Unknown]
